FAERS Safety Report 10774560 (Version 3)
Quarter: 2017Q1

REPORT INFORMATION
  Report Type: Spontaneous
  Country: FI (occurrence: FI)
  Receive Date: 20150128
  Receipt Date: 20170123
  Transmission Date: 20170428
  Serious: Yes (Other)
  Sender: FDA-Public Use
  Company Number: GAM-011-15-FI

PATIENT
  Age: 61 Year
  Sex: Male

DRUGS (1)
  1. OCTAGAM IMMUNE GLOBULIN (HUMAN) [Suspect]
     Active Substance: HUMAN IMMUNOGLOBULIN G
     Indication: RADICULOPATHY
     Dosage: 2X ON 5 CONSECUTIVE DAYS 25 G
     Route: 042
     Dates: start: 20141206, end: 20150104

REACTIONS (4)
  - Campylobacter test positive [Recovering/Resolving]
  - Brucella test positive [Recovering/Resolving]
  - Leptospira test positive [Recovering/Resolving]
  - Suspected transmission of an infectious agent via product [Recovering/Resolving]

NARRATIVE: CASE EVENT DATE: 201412
